FAERS Safety Report 7111211-9 (Version None)
Quarter: 2010Q4

REPORT INFORMATION
  Report Type: 
  Country: None (occurrence: None)
  Receive Date: 20101118
  Receipt Date: 20100225
  Transmission Date: 20110411
  Serious: Yes (Other)
  Sender: FDA-Public Use
  Company Number: US-PFIZER INC-2010015342

PATIENT
  Sex: Female
  Weight: 64 kg

DRUGS (13)
  1. ZYVOX [Suspect]
     Indication: PNEUMONIA
     Dosage: 600 MG, 2X/DAY
     Route: 042
     Dates: start: 20100110, end: 20100115
  2. PEPCID [Concomitant]
     Dosage: UNK
  3. HYDROCHLOROTHIAZIDE [Concomitant]
     Dosage: UNK
  4. ZOCOR [Concomitant]
     Dosage: UNK
  5. ZESTRIL [Concomitant]
     Dosage: UNK
  6. PREDNISONE [Concomitant]
     Dosage: UNK
  7. DANTROLENE [Concomitant]
     Dosage: UNK
  8. FRAGMIN [Concomitant]
     Dosage: UNK
  9. SOTALOL [Concomitant]
     Dosage: UNK
  10. LABETALOL [Concomitant]
     Dosage: UNK
  11. TYLENOL (CAPLET) [Concomitant]
     Dosage: UNK
  12. FENTANYL [Concomitant]
     Dosage: UNK
  13. MEROPENEM [Concomitant]
     Dosage: UNK

REACTIONS (1)
  - HEPATIC ENZYME INCREASED [None]
